FAERS Safety Report 18036565 (Version 1)
Quarter: 2020Q3

REPORT INFORMATION
  Report Type: Spontaneous
  Country: ES (occurrence: ES)
  Receive Date: 20200717
  Receipt Date: 20200717
  Transmission Date: 20201103
  Serious: Yes (Death, Hospitalization, Other)
  Sender: FDA-Public Use
  Company Number: ES-ACCORD-190713

PATIENT
  Age: 48 Year
  Sex: Male

DRUGS (4)
  1. METHOTREXATE. [Suspect]
     Active Substance: METHOTREXATE
     Indication: COGAN^S SYNDROME
  2. CYCLOPHOSPHAMIDE/CYCLOPHOSPHAMIDE MONOHYDRATE [Suspect]
     Active Substance: CYCLOPHOSPHAMIDE
     Indication: COGAN^S SYNDROME
  3. TOCILIZUMAB. [Suspect]
     Active Substance: TOCILIZUMAB
     Indication: COGAN^S SYNDROME
  4. PREDNISONE. [Suspect]
     Active Substance: PREDNISONE
     Indication: COGAN^S SYNDROME

REACTIONS (7)
  - Neutropenia [Unknown]
  - Steroid diabetes [Unknown]
  - Septic shock [Fatal]
  - Endocarditis bacterial [Fatal]
  - Facial paralysis [Unknown]
  - Leukopenia [Unknown]
  - Off label use [Unknown]
